FAERS Safety Report 15826337 (Version 1)
Quarter: 2018Q4

REPORT INFORMATION
  Report Type: Spontaneous
  Country: US (occurrence: US)
  Receive Date: 20181217
  Receipt Date: 20181217
  Transmission Date: 20190205
  Serious: No
  Sender: FDA-Public Use
  Company Number: None

PATIENT
  Sex: Female

DRUGS (4)
  1. AZITHROMYOIN TAB 500MG [Concomitant]
  2. XELJANZ XR [Suspect]
     Active Substance: TOFACITINIB CITRATE
     Indication: PRODUCT USED FOR UNKNOWN INDICATION
     Route: 048
  3. ??? TAB [Concomitant]
  4. HYDROSURANTIN [Concomitant]

REACTIONS (3)
  - Musculoskeletal stiffness [None]
  - Condition aggravated [None]
  - Vocal cord disorder [None]
